FAERS Safety Report 14130961 (Version 2)
Quarter: 2018Q1

REPORT INFORMATION
  Report Type: Report from Study
  Country: US (occurrence: US)
  Receive Date: 20171026
  Receipt Date: 20180123
  Transmission Date: 20180508
  Serious: No
  Sender: FDA-Public Use
  Company Number: US-AMGEN-USASL2017141544

PATIENT
  Age: 81 Year
  Sex: Female
  Weight: 111.57 kg

DRUGS (1)
  1. REPATHA [Suspect]
     Active Substance: EVOLOCUMAB
     Indication: BLOOD CHOLESTEROL INCREASED
     Dosage: 420 MG, QMO
     Route: 065
     Dates: start: 20170828

REACTIONS (7)
  - Retching [Unknown]
  - Influenza like illness [Unknown]
  - Vomiting [Recovered/Resolved]
  - Nasopharyngitis [Unknown]
  - Diarrhoea [Recovered/Resolved]
  - Gastrointestinal viral infection [Recovering/Resolving]
  - Nausea [Recovered/Resolved]

NARRATIVE: CASE EVENT DATE: 2017
